FAERS Safety Report 23597068 (Version 1)
Quarter: 2024Q1

REPORT INFORMATION
  Report Type: Spontaneous
  Country: FR (occurrence: FR)
  Receive Date: 20240305
  Receipt Date: 20240305
  Transmission Date: 20240409
  Serious: Yes (Hospitalization)
  Sender: FDA-Public Use
  Company Number: None

PATIENT

DRUGS (7)
  1. TEBENTAFUSP [Suspect]
     Active Substance: TEBENTAFUSP
     Indication: Choroid melanoma
     Dosage: 68 UG/ WEEKLY
     Route: 042
     Dates: start: 20210912, end: 20220102
  2. DACARBAZINE [Suspect]
     Active Substance: DACARBAZINE
     Indication: Choroid melanoma
     Dosage: 1620 MILLIGRAM
     Route: 042
     Dates: start: 20210112, end: 20210226
  3. FOTEMUSTINE [Suspect]
     Active Substance: FOTEMUSTINE
     Indication: Choroid melanoma
     Dosage: UNK WEEK
     Route: 042
     Dates: start: 20210408, end: 20210902
  4. KEYTRUDA [Suspect]
     Active Substance: PEMBROLIZUMAB
     Indication: Choroid melanoma
     Dosage: UNK, 1 {CYCLICAL}
     Route: 042
     Dates: start: 202007, end: 2020
  5. LATANOPROST [Concomitant]
     Active Substance: LATANOPROST
     Indication: Product used for unknown indication
     Dosage: UNK
  6. LEVOTHYROXINE SODIUM [Concomitant]
     Active Substance: LEVOTHYROXINE SODIUM
     Indication: Product used for unknown indication
     Dosage: UNK
  7. DORZOLAMIDE\TIMOLOL [Concomitant]
     Active Substance: DORZOLAMIDE\TIMOLOL
     Indication: Product used for unknown indication
     Dosage: UNK

REACTIONS (1)
  - Acute myeloid leukaemia [Not Recovered/Not Resolved]

NARRATIVE: CASE EVENT DATE: 20220102
